FAERS Safety Report 4445480-0 (Version None)
Quarter: 2004Q2

REPORT INFORMATION
  Report Type: 
  Country: None (occurrence: None)
  Receive Date: 20040525
  Receipt Date: 20040312
  Transmission Date: 20050107
  Serious: Yes (Hospitalization)
  Sender: FDA-Public Use
  Company Number: 235870

PATIENT
  Age: 15 Year
  Sex: Male
  Weight: 100 kg

DRUGS (2)
  1. NOVOSEVEN [Suspect]
     Indication: HAEMOPHILIA A WITH ANTI FACTOR VIII
     Dosage: 90 UG/KG, Q 6H, INTRAVENOUS
     Route: 042
     Dates: end: 20040308
  2. NOVOSEVEN [Suspect]
     Indication: HAEMOPHILIA A WITH ANTI FACTOR VIII
     Dosage: 90 UG/KG, Q 6H, INTRAVENOUS
     Route: 042
     Dates: start: 20040308, end: 20040310

REACTIONS (1)
  - THERAPEUTIC RESPONSE DECREASED [None]
